FAERS Safety Report 4950287-1 (Version None)
Quarter: 2006Q1

REPORT INFORMATION
  Report Type: 
  Country: None (occurrence: None)
  Receive Date: 20060316
  Receipt Date: 20060228
  Transmission Date: 20060701
  Serious: Yes (Hospitalization)
  Sender: FDA-Public Use
  Company Number: WAES 0603USA02314

PATIENT
  Age: 68 Year
  Sex: Female

DRUGS (10)
  1. SINGULAIR [Suspect]
     Indication: ASTHMA
     Dosage: SEE IMAGE
     Route: 048
     Dates: start: 20060223, end: 20060228
  2. SINGULAIR [Suspect]
     Indication: ASTHMA
     Dosage: SEE IMAGE
     Route: 048
     Dates: start: 20051026
  3. ANPLAG [Concomitant]
  4. CEPHADOL [Concomitant]
  5. COMENAN [Concomitant]
  6. EPADEL [Concomitant]
  7. NU-LOTRAN [Concomitant]
  8. PREDONINE [Concomitant]
  9. SEREVENT [Concomitant]
  10. SERATRODAST [Concomitant]

REACTIONS (6)
  - DYSPEPSIA [None]
  - FEELING ABNORMAL [None]
  - HEADACHE [None]
  - MUSCULOSKELETAL STIFFNESS [None]
  - MYALGIA [None]
  - PALPITATIONS [None]
